FAERS Safety Report 6157785-6 (Version None)
Quarter: 2009Q2

REPORT INFORMATION
  Report Type: 
  Country: None (occurrence: None)
  Receive Date: 20090414
  Receipt Date: 20090408
  Transmission Date: 20091009
  Serious: Yes (Death)
  Sender: FDA-Public Use
  Company Number: TPA2009A00572

PATIENT
  Sex: Male

DRUGS (1)
  1. ACTOS [Suspect]
     Indication: BLOOD GLUCOSE INCREASED

REACTIONS (1)
  - MYOCARDIAL INFARCTION [None]
